APPROVED DRUG PRODUCT: POTASSIUM CHLORIDE
Active Ingredient: POTASSIUM CHLORIDE
Strength: 10MEQ
Dosage Form/Route: TABLET, EXTENDED RELEASE;ORAL
Application: A209688 | Product #001 | TE Code: AB3
Applicant: TWI PHARMACEUTICALS INC
Approved: Jan 12, 2018 | RLD: No | RS: No | Type: RX